FAERS Safety Report 22354948 (Version 6)
Quarter: 2023Q4

REPORT INFORMATION
  Report Type: Spontaneous
  Country: DE (occurrence: DE)
  Receive Date: 20230523
  Receipt Date: 20231019
  Transmission Date: 20240110
  Serious: Yes (Life-Threatening, Disabling, Other)
  Sender: FDA-Public Use
  Company Number: DE-BFARM-23003551

PATIENT
  Age: 51 Year
  Sex: Female
  Weight: 62 kg

DRUGS (2)
  1. TERIFLUNOMIDE [Suspect]
     Active Substance: TERIFLUNOMIDE
     Indication: Multiple sclerosis
     Route: 065
     Dates: start: 201503, end: 201905
  2. FINGOLIMOD [Suspect]
     Active Substance: FINGOLIMOD
     Indication: Multiple sclerosis
     Route: 065
     Dates: start: 201907, end: 20230419

REACTIONS (1)
  - Non-small cell lung cancer [Not Recovered/Not Resolved]

NARRATIVE: CASE EVENT DATE: 20230401
